FAERS Safety Report 15005856 (Version 1)
Quarter: 2018Q2

REPORT INFORMATION
  Report Type: Spontaneous
  Country: US (occurrence: US)
  Receive Date: 20180521
  Receipt Date: 20180521
  Transmission Date: 20180711
  Serious: Yes (Hospitalization)
  Sender: FDA-Public Use
  Company Number: None

PATIENT
  Age: 85 Year
  Sex: Male
  Weight: 78 kg

DRUGS (12)
  1. COREG [Concomitant]
     Active Substance: CARVEDILOL
  2. PREVACID [Concomitant]
     Active Substance: LANSOPRAZOLE
  3. GARLIC. [Concomitant]
     Active Substance: GARLIC
  4. ZOCOR [Concomitant]
     Active Substance: SIMVASTATIN
  5. NIASPAN [Concomitant]
     Active Substance: NIACIN
  6. ASPIRIN. [Suspect]
     Active Substance: ASPIRIN
     Indication: CORONARY ARTERY DISEASE
     Route: 048
  7. COZAAR [Concomitant]
     Active Substance: LOSARTAN POTASSIUM
  8. PLAVIX [Suspect]
     Active Substance: CLOPIDOGREL BISULFATE
     Indication: ATRIAL FIBRILLATION
     Route: 048
  9. ISMO [Concomitant]
     Active Substance: ISOSORBIDE MONONITRATE
  10. DEMADEX [Concomitant]
     Active Substance: TORSEMIDE
  11. FOLVITE [Concomitant]
     Active Substance: FOLIC ACID
  12. SYNTHROID [Concomitant]
     Active Substance: LEVOTHYROXINE SODIUM

REACTIONS (2)
  - Platelet count decreased [None]
  - Post procedural haemorrhage [None]

NARRATIVE: CASE EVENT DATE: 20180208
